FAERS Safety Report 6812193-7 (Version None)
Quarter: 2010Q3

REPORT INFORMATION
  Report Type: 
  Country: None (occurrence: None)
  Receive Date: 20100701
  Receipt Date: 20100628
  Transmission Date: 20110219
  Serious: Yes (Life-Threatening, Hospitalization)
  Sender: FDA-Public Use
  Company Number: FR-CELGENEUS-056-21880-10032855

PATIENT
  Sex: Female
  Weight: 71 kg

DRUGS (9)
  1. REVLIMID [Suspect]
     Route: 048
     Dates: start: 20100330
  2. REVLIMID [Suspect]
     Route: 048
     Dates: start: 20100317, end: 20100323
  3. REVLIMID [Suspect]
     Route: 048
     Dates: start: 20100304, end: 20100313
  4. REVLIMID [Suspect]
     Route: 048
     Dates: start: 20100224, end: 20100227
  5. ROCEPHIN [Concomitant]
     Indication: PALLIATIVE CARE
     Route: 065
     Dates: start: 20100219, end: 20100323
  6. TAVANIC [Concomitant]
     Indication: PALLIATIVE CARE
     Route: 065
     Dates: start: 20100219, end: 20100323
  7. LOXEN [Concomitant]
     Indication: PRODUCT USED FOR UNKNOWN INDICATION
     Route: 065
  8. LASIX [Concomitant]
     Indication: PRODUCT USED FOR UNKNOWN INDICATION
     Route: 065
  9. DEXAMETHASONE [Concomitant]
     Indication: PRODUCT USED FOR UNKNOWN INDICATION
     Route: 065

REACTIONS (7)
  - ASTHENIA [None]
  - DEHYDRATION [None]
  - DIARRHOEA [None]
  - GENERAL PHYSICAL HEALTH DETERIORATION [None]
  - HAEMORRHAGE [None]
  - MALNUTRITION [None]
  - PNEUMONIA [None]
